FAERS Safety Report 7028366-7 (Version None)
Quarter: 2010Q4

REPORT INFORMATION
  Report Type: 
  Country: None (occurrence: None)
  Receive Date: 20101005
  Receipt Date: 20100923
  Transmission Date: 20110411
  Serious: Yes (Hospitalization)
  Sender: FDA-Public Use
  Company Number: FR-PFIZER INC-2010120686

PATIENT
  Age: 36 Year
  Sex: Female

DRUGS (2)
  1. CLINDAMYCIN HCL [Suspect]
     Indication: SINUSITIS
     Dosage: 600 MG, 2X/DAY
     Route: 048
     Dates: start: 20100828, end: 20100906
  2. BACTRIM DS [Suspect]
     Indication: SINUSITIS
     Dosage: 1 DF, 2X/DAY
     Route: 048
     Dates: start: 20100828, end: 20100906

REACTIONS (2)
  - PYREXIA [None]
  - TOXIC SKIN ERUPTION [None]
